FAERS Safety Report 14878723 (Version 1)
Quarter: 2018Q2

REPORT INFORMATION
  Report Type: Spontaneous
  Country: US (occurrence: US)
  Receive Date: 20180511
  Receipt Date: 20180511
  Transmission Date: 20180711
  Serious: No
  Sender: FDA-Public Use
  Company Number: US-PUMA BIOTECHNOLOGY, LTD.-2018US003924

PATIENT

DRUGS (2)
  1. NERLYNX [Suspect]
     Active Substance: NERATINIB
     Indication: BONE CANCER
  2. NERLYNX [Suspect]
     Active Substance: NERATINIB
     Indication: GASTRIC CANCER

REACTIONS (2)
  - Off label use [Unknown]
  - Hospice care [Unknown]
